FAERS Safety Report 18991088 (Version 1)
Quarter: 2021Q1

REPORT INFORMATION
  Report Type: Spontaneous
  Country: SK (occurrence: SK)
  Receive Date: 20210310
  Receipt Date: 20210310
  Transmission Date: 20210420
  Serious: Yes (Other)
  Sender: FDA-Public Use
  Company Number: SK-SUN PHARMACEUTICAL INDUSTRIES LTD-2021R1-285001

PATIENT
  Age: 32 Year
  Sex: Female

DRUGS (1)
  1. ACETYLSALICYLIC ACID [Suspect]
     Active Substance: ASPIRIN
     Indication: HYPERCOAGULATION
     Dosage: 100 MILLIGRAM, DAILY
     Route: 065

REACTIONS (4)
  - Seborrhoea [Recovering/Resolving]
  - Rash [Recovering/Resolving]
  - Alopecia [Recovering/Resolving]
  - Exposure during pregnancy [Unknown]
